FAERS Safety Report 16774908 (Version 3)
Quarter: 2019Q3

REPORT INFORMATION
  Report Type: Report from Study
  Country: SK (occurrence: SK)
  Receive Date: 20190905
  Receipt Date: 20190923
  Transmission Date: 20191005
  Serious: Yes (Other)
  Sender: FDA-Public Use
  Company Number: SK-EMD SERONO-9114711

PATIENT
  Sex: Female

DRUGS (1)
  1. REBIF [Suspect]
     Active Substance: INTERFERON BETA-1A
     Indication: MULTIPLE SCLEROSIS
     Route: 058
     Dates: start: 20190204

REACTIONS (4)
  - Sinus polyp [Unknown]
  - Immunosuppression [Unknown]
  - Bronchitis [Unknown]
  - Sinusitis [Unknown]

NARRATIVE: CASE EVENT DATE: 2019
